FAERS Safety Report 12769244 (Version 1)
Quarter: 2016Q3

REPORT INFORMATION
  Report Type: Spontaneous
  Country: FI (occurrence: FI)
  Receive Date: 20160921
  Receipt Date: 20160921
  Transmission Date: 20161109
  Serious: Yes (Hospitalization)
  Sender: FDA-Public Use
  Company Number: FI-B.I. PHARMACEUTICALS,INC./RIDGEFIELD-2016-BI-60111SF

PATIENT
  Age: 70 Year
  Sex: Male

DRUGS (9)
  1. LANTUS [Concomitant]
     Active Substance: INSULIN GLARGINE
     Indication: TYPE 2 DIABETES MELLITUS
     Dosage: 66 U
     Route: 058
     Dates: start: 2013
  2. ASA [Concomitant]
     Active Substance: ASPIRIN
     Indication: ANTICOAGULANT THERAPY
     Dosage: 100 MG
     Route: 048
  3. LENTOCILLIN S [Concomitant]
     Indication: PROPHYLAXIS
     Dosage: 1200; FORMULATION: INJECTION
     Route: 030
  4. LOSARTAN. [Concomitant]
     Active Substance: LOSARTAN
     Indication: HYPERTONIA
     Dosage: COMP (COMPOUND); DOSE PER APPLICATION AND DAILY DOSE: 100/12.5
     Route: 048
     Dates: start: 2013
  5. TAMSUMIN [Concomitant]
     Active Substance: TAMSULOSIN
     Indication: DRUG THERAPY
     Dosage: 0.4 MG
     Route: 048
     Dates: start: 2009
  6. DIFORMIN [Concomitant]
     Active Substance: METFORMIN HYDROCHLORIDE
     Indication: TYPE 2 DIABETES MELLITUS
     Dosage: 2 G
     Route: 048
     Dates: start: 2013
  7. JARDIANCE [Suspect]
     Active Substance: EMPAGLIFLOZIN
     Indication: TYPE 2 DIABETES MELLITUS
     Dosage: 10 MG
     Route: 065
     Dates: start: 20160418, end: 20160811
  8. GALVUS [Concomitant]
     Active Substance: VILDAGLIPTIN
     Indication: TYPE 2 DIABETES MELLITUS
     Dosage: 100 MG
     Route: 048
     Dates: start: 2015
  9. SIMVASTATIN. [Concomitant]
     Active Substance: SIMVASTATIN
     Indication: HYPERCHOLESTEROLAEMIA
     Dosage: 20 MG
     Route: 048
     Dates: start: 2011

REACTIONS (3)
  - Urinary tract infection [Recovered/Resolved]
  - Pyrexia [Recovered/Resolved]
  - Urosepsis [Recovered/Resolved]

NARRATIVE: CASE EVENT DATE: 201608
